FAERS Safety Report 10034121 (Version 1)
Quarter: 2014Q1

REPORT INFORMATION
  Report Type: Spontaneous
  Country: US (occurrence: US)
  Receive Date: 20140325
  Receipt Date: 20140325
  Transmission Date: 20141002
  Serious: No
  Sender: FDA-Public Use
  Company Number: US-BAYER-2014-041068

PATIENT
  Age: 32 Year
  Sex: Male
  Weight: 79 kg

DRUGS (21)
  1. BETASERON [Suspect]
     Dosage: 0.3 MG, UNK
  2. SINGULAIR [Concomitant]
     Dosage: 10 MG, UNK
  3. AMBIEN [Concomitant]
     Dosage: 10 MG, UNK
  4. ANTIVERT [Concomitant]
     Dosage: 50 MG, UNK
  5. OLOPATADINE HYDROCHLORIDE [Concomitant]
  6. NEURONTIN [Concomitant]
     Dosage: 100 MG, UNK
  7. DEPAKOTE [Concomitant]
     Dosage: 500 MG, UNK
  8. NASONEX [Concomitant]
     Dosage: 500 ?G, UNK
  9. CLONAZEPAM [Concomitant]
     Dosage: 2 MG, UNK
  10. BACLOFEN [Concomitant]
     Dosage: 10 MG, UNK
  11. VALTREX [Concomitant]
     Dosage: 1 G, UNK
  12. NEXIUM [Concomitant]
     Dosage: 20 MG, UNK
  13. AMANTADINE [Concomitant]
     Dosage: 100 MG, UNK
  14. PROZAC [Concomitant]
     Dosage: 10 MG, UNK
  15. ZANTAC [Concomitant]
     Dosage: UNK
  16. KEPPRA [Concomitant]
     Dosage: 500 MG, UNK
  17. TYLENOL [PARACETAMOL] [Concomitant]
     Dosage: 500 MG, UNK
  18. FIORICET [Concomitant]
  19. VYVANSE [Concomitant]
     Dosage: 40 MG, UNK
  20. DICLOFENAC [Concomitant]
     Dosage: 25 MG, UNK
  21. COPAXONE [Concomitant]
     Dosage: 40 MG/ML, UNK

REACTIONS (2)
  - Injection site mass [Unknown]
  - Injection site erythema [Unknown]
